FAERS Safety Report 6434873-8 (Version None)
Quarter: 2009Q4

REPORT INFORMATION
  Report Type: 
  Country: None (occurrence: None)
  Receive Date: 20091109
  Receipt Date: 20091109
  Transmission Date: 20100525
  Serious: Yes (Hospitalization)
  Sender: FDA-Public Use
  Company Number: None

PATIENT
  Age: 23 Year
  Sex: Male
  Weight: 110.2241 kg

DRUGS (3)
  1. APLENZIN [Suspect]
     Indication: ANXIETY
     Dates: start: 20091026, end: 20091106
  2. APLENZIN [Suspect]
     Indication: DEPRESSION
     Dates: start: 20091026, end: 20091106
  3. PROZAC [Concomitant]

REACTIONS (3)
  - CONVULSION [None]
  - HYPERTENSION [None]
  - TACHYCARDIA [None]
